FAERS Safety Report 7540457-0 (Version None)
Quarter: 2011Q2

REPORT INFORMATION
  Report Type: 
  Country: None (occurrence: None)
  Receive Date: 20110603
  Receipt Date: 20110518
  Transmission Date: 20111010
  Serious: Yes (Hospitalization)
  Sender: FDA-Public Use
  Company Number: 2011MA006075

PATIENT
  Age: 62 Year
  Sex: Male

DRUGS (4)
  1. ATENOLOL [Concomitant]
  2. HYDROCHLOROTHIAZIDE [Concomitant]
  3. LISINOPRIL [Concomitant]
  4. MINOXIDIL EXTRA STRENGTH (FOR MEN) [Suspect]
     Indication: BLOOD PRESSURE ABNORMAL
     Dosage: 20 MG;BID

REACTIONS (4)
  - PLEURAL EFFUSION [None]
  - PERICARDIAL EFFUSION [None]
  - IDIOSYNCRATIC DRUG REACTION [None]
  - DRUG HYPERSENSITIVITY [None]
